FAERS Safety Report 14532097 (Version 1)
Quarter: 2018Q1

REPORT INFORMATION
  Report Type: Spontaneous
  Country: ES (occurrence: ES)
  Receive Date: 20180214
  Receipt Date: 20180214
  Transmission Date: 20180509
  Serious: Yes (Life-Threatening, Hospitalization)
  Sender: FDA-Public Use
  Company Number: PHHY2018ES024858

PATIENT
  Age: 78 Year
  Sex: Male
  Weight: 98 kg

DRUGS (1)
  1. ACICLOVIR [Suspect]
     Active Substance: ACYCLOVIR
     Indication: OPHTHALMIC HERPES SIMPLEX
     Dosage: 1 CP / 5 TIMES A DAY
     Route: 048

REACTIONS (1)
  - Nephritic syndrome [Not Recovered/Not Resolved]

NARRATIVE: CASE EVENT DATE: 20171121
